FAERS Safety Report 5848504-9 (Version None)
Quarter: 2008Q3

REPORT INFORMATION
  Report Type: 
  Country: None (occurrence: None)
  Receive Date: 20080818
  Receipt Date: 20080527
  Transmission Date: 20090109
  Serious: No
  Sender: FDA-Public Use
  Company Number: US-BAYER-200812332BCC

PATIENT
  Age: 63 Year
  Sex: Female
  Weight: 61 kg

DRUGS (6)
  1. ALEVE [Suspect]
     Indication: ARTHRALGIA
  2. LOPRESSOR [Concomitant]
  3. ZOCOR [Concomitant]
  4. TEGRETOL [Concomitant]
  5. VICODIN [Concomitant]
  6. ASPIRIN [Concomitant]

REACTIONS (1)
  - ARTHRALGIA [None]
